FAERS Safety Report 5460221-6 (Version None)
Quarter: 2007Q3

REPORT INFORMATION
  Report Type: 
  Country: None (occurrence: None)
  Receive Date: 20070919
  Receipt Date: 20070608
  Transmission Date: 20080115
  Serious: No
  Sender: FDA-Public Use
  Company Number: US-ASTRAZENECA-2007UW13841

PATIENT
  Age: 35 Year
  Sex: Female
  Weight: 61.2 kg

DRUGS (3)
  1. SEROQUEL [Suspect]
     Indication: ABNORMAL DREAMS
     Route: 048
  2. SEROQUEL [Suspect]
     Route: 048
     Dates: end: 20070601
  3. LAMICTAL [Concomitant]

REACTIONS (1)
  - SLEEP DISORDER [None]
